FAERS Safety Report 7986951-X (Version None)
Quarter: 2011Q4

REPORT INFORMATION
  Report Type: 
  Country: None (occurrence: None)
  Receive Date: 20111216
  Receipt Date: 20111026
  Transmission Date: 20120403
  Serious: Yes (Death)
  Sender: FDA-Public Use
  Company Number: US-BRISTOL-MYERS SQUIBB COMPANY-16059123

PATIENT
  Age: 27 Year
  Sex: Male

DRUGS (5)
  1. LUVOX [Suspect]
     Indication: DEPRESSION
     Route: 048
  2. ABILIFY [Suspect]
     Indication: DEPRESSION
     Route: 048
     Dates: start: 20110907
  3. LUVOX [Suspect]
     Indication: SOCIAL PHOBIA
     Route: 048
  4. XANAX [Concomitant]
     Dates: start: 20110904
  5. ABILIFY [Suspect]
     Indication: BIPOLAR DISORDER
     Route: 048
     Dates: start: 20110907

REACTIONS (1)
  - COMPLETED SUICIDE [None]
